FAERS Safety Report 23726623 (Version 1)
Quarter: 2024Q2

REPORT INFORMATION
  Report Type: Spontaneous
  Country: US (occurrence: US)
  Receive Date: 20240410
  Receipt Date: 20240410
  Transmission Date: 20240716
  Serious: Yes (Other)
  Sender: FDA-Public Use
  Company Number: US-AUROBINDO-AUR-APL-2024-015477

PATIENT
  Age: 67 Year
  Sex: Female

DRUGS (1)
  1. PREDNISONE [Suspect]
     Active Substance: PREDNISONE
     Indication: Dermatitis bullous
     Dosage: 1 MICROGRAM/KILOGRAM, ONCE A DAY FOR 1 WEEK
     Route: 065

REACTIONS (1)
  - Drug ineffective [Unknown]
